FAERS Safety Report 6752338-0 (Version None)
Quarter: 2010Q2

REPORT INFORMATION
  Report Type: 
  Country: None (occurrence: None)
  Receive Date: 20100602
  Receipt Date: 20100518
  Transmission Date: 20101027
  Serious: Yes (Other)
  Sender: FDA-Public Use
  Company Number: NL-PFIZER INC-2010062388

PATIENT
  Age: 47 Year
  Sex: Male

DRUGS (2)
  1. PREDNISOLONE [Suspect]
     Dosage: 10 MG, 1X/DAY
  2. AZATHIOPRINE [Suspect]
     Dosage: 175 MG, 1X/DAY

REACTIONS (1)
  - SQUAMOUS CELL CARCINOMA [None]
